FAERS Safety Report 4915014-2 (Version None)
Quarter: 2006Q1

REPORT INFORMATION
  Report Type: 
  Country: None (occurrence: None)
  Receive Date: 20060217
  Receipt Date: 20060105
  Transmission Date: 20060701
  Serious: Yes (Hospitalization)
  Sender: FDA-Public Use
  Company Number: PHNU2006DE00462

PATIENT
  Age: 60 Year
  Sex: Female
  Weight: 51 kg

DRUGS (4)
  1. FUROSEMIDE [Concomitant]
     Route: 065
  2. ACLASTA [Suspect]
     Indication: OSTEOPOROSIS
     Dosage: 5 MG, ONCE/SINGLE
     Route: 042
     Dates: start: 20060103, end: 20060103
  3. BETA BLOCKING AGENTS [Concomitant]
     Route: 065
  4. FENTANYL [Concomitant]
     Route: 065

REACTIONS (9)
  - ARTHRALGIA [None]
  - BLOOD CALCIUM DECREASED [None]
  - BLOOD CREATININE INCREASED [None]
  - BONE PAIN [None]
  - C-REACTIVE PROTEIN INCREASED [None]
  - CONCOMITANT DISEASE AGGRAVATED [None]
  - INFECTION [None]
  - LEUKOCYTOSIS [None]
  - PYREXIA [None]
